FAERS Safety Report 4762867-7 (Version None)
Quarter: 2005Q3

REPORT INFORMATION
  Report Type: 
  Country: None (occurrence: None)
  Receive Date: 20050907
  Receipt Date: 20050829
  Transmission Date: 20060218
  Serious: Yes (Other)
  Sender: FDA-Public Use
  Company Number: PHBS2005FR12976

PATIENT
  Age: 60 Year
  Sex: Female

DRUGS (1)
  1. IMATINIB [Suspect]
     Indication: CHRONIC MYELOID LEUKAEMIA
     Dosage: 400 MG/D

REACTIONS (3)
  - COLON CANCER STAGE I [None]
  - RECTAL HAEMORRHAGE [None]
  - SURGERY [None]
